FAERS Safety Report 6314808-9 (Version None)
Quarter: 2009Q3

REPORT INFORMATION
  Report Type: 
  Country: None (occurrence: None)
  Receive Date: 20090817
  Receipt Date: 20090731
  Transmission Date: 20100115
  Serious: Yes (Hospitalization)
  Sender: FDA-Public Use
  Company Number: 2009BI024517

PATIENT
  Age: 32 Year
  Sex: Male

DRUGS (6)
  1. ZEVALIN [Suspect]
     Indication: B-CELL LYMPHOMA
     Dosage: 25.2 MCI; 1X; IV
     Route: 042
     Dates: start: 20090522, end: 20090522
  2. ZEVALIN [Suspect]
     Indication: BONE MARROW CONDITIONING REGIMEN
     Dosage: 25.2 MCI; 1X; IV
     Route: 042
     Dates: start: 20090522, end: 20090522
  3. RITUXIMAB [Concomitant]
  4. FLUDARABINE PHOSPHATE [Concomitant]
  5. MELPHALAN HYDROCHLORIDE [Concomitant]
  6. PREV MEDS [Concomitant]

REACTIONS (2)
  - ACUTE GRAFT VERSUS HOST DISEASE IN INTESTINE [None]
  - DRUG INTOLERANCE [None]
